FAERS Safety Report 6834912-6 (Version None)
Quarter: 2010Q3

REPORT INFORMATION
  Report Type: 
  Country: None (occurrence: None)
  Receive Date: 20100712
  Receipt Date: 20070413
  Transmission Date: 20110219
  Serious: No
  Sender: FDA-Public Use
  Company Number: US-PFIZER INC-2007028421

PATIENT
  Sex: Female
  Weight: 45.36 kg

DRUGS (6)
  1. CHANTIX [Suspect]
     Indication: SMOKING CESSATION THERAPY
     Dates: start: 20070330
  2. OLANZAPINE [Interacting]
     Indication: DEPRESSION
  3. PROZAC [Interacting]
     Indication: DEPRESSION
  4. KLONOPIN [Concomitant]
     Indication: ANXIETY
  5. ACTONEL [Concomitant]
     Indication: BONE DISORDER
  6. PRILOSEC [Concomitant]

REACTIONS (4)
  - BLOOD URINE PRESENT [None]
  - DEPRESSION [None]
  - DRUG INTERACTION [None]
  - FEELING ABNORMAL [None]
